FAERS Safety Report 15133227 (Version 3)
Quarter: 2018Q3

REPORT INFORMATION
  Report Type: Spontaneous
  Country: JP (occurrence: JP)
  Receive Date: 20180712
  Receipt Date: 20180920
  Transmission Date: 20181010
  Serious: Yes (Hospitalization)
  Sender: FDA-Public Use
  Company Number: JP-AMGEN-JPNSP2018093452

PATIENT
  Age: 83 Year
  Sex: Male
  Weight: 60 kg

DRUGS (6)
  1. PRALIA [Suspect]
     Active Substance: DENOSUMAB
     Indication: HYPERCALCAEMIA
     Dosage: 60 MG, QD
     Route: 058
     Dates: start: 20180619
  2. ENSURE [Concomitant]
     Active Substance: AMINO ACIDS\DEXTROSE\ELECTROLYTES NOS\SOYBEAN OIL\VITAMINS
     Dosage: UNK
     Route: 048
  3. DENOTAS [Suspect]
     Active Substance: CALCIUM CARBONATE\CHOLECALCIFEROL\MAGNESIUM CARBONATE
     Indication: HYPOCALCAEMIA
     Dosage: 2 DF, QD
     Route: 048
     Dates: start: 20180622, end: 20180628
  4. ALFACALCIDOL [Concomitant]
     Active Substance: ALFACALCIDOL
     Dosage: 0.25 MG, UNK
     Route: 048
     Dates: start: 20180623, end: 20180628
  5. ACTONEL [Suspect]
     Active Substance: RISEDRONATE SODIUM
     Indication: HYPERCALCAEMIA
     Dosage: 2.5 MG, QD
     Route: 048
     Dates: start: 20180615, end: 20180622
  6. MEMARY OD [Concomitant]
     Active Substance: MEMANTINE HYDROCHLORIDE
     Dosage: UNK
     Route: 065

REACTIONS (4)
  - Hypocalcaemia [Not Recovered/Not Resolved]
  - Rash pruritic [Not Recovered/Not Resolved]
  - Off label use [Unknown]
  - Hypophosphataemia [Not Recovered/Not Resolved]

NARRATIVE: CASE EVENT DATE: 20180622
